FAERS Safety Report 9418989 (Version 2)
Quarter: 2013Q3

REPORT INFORMATION
  Report Type: Spontaneous
  Country: US (occurrence: US)
  Receive Date: 20130725
  Receipt Date: 20130828
  Transmission Date: 20140515
  Serious: Yes (Hospitalization)
  Sender: FDA-Public Use
  Company Number: US-GENZYME-POMP-1003142

PATIENT
  Age: 17 Year
  Sex: Female
  Weight: 55.45 kg

DRUGS (8)
  1. LUMIZYME [Suspect]
     Indication: GLYCOGEN STORAGE DISEASE TYPE II
     Dosage: 7.21 MG/KG, QW
     Route: 042
     Dates: start: 20101231
  2. BENADRYL [Concomitant]
     Indication: PREMEDICATION
     Dosage: 50 MG, QW
     Route: 048
  3. IBUPROFEN [Concomitant]
     Indication: PREMEDICATION
     Dosage: 400 MG, QW
     Route: 048
  4. ELAVIL [Concomitant]
     Indication: DEPRESSION
     Dosage: 50 MG, QD
     Route: 065
  5. CELEBREX [Concomitant]
     Indication: ARTHRALGIA
     Dosage: 100 MG, BID
     Route: 065
  6. EPHEDRINE [Concomitant]
     Indication: GLYCOGEN STORAGE DISEASE TYPE II
     Dosage: 25 MG, BID
     Route: 065
  7. GABAPENTIN [Concomitant]
     Indication: PAIN
     Dosage: 300 MG, TID
     Route: 065
  8. ZOLOFT [Concomitant]
     Indication: DEPRESSION
     Dosage: 50 MG, QD
     Route: 065

REACTIONS (2)
  - Hand deformity [Not Recovered/Not Resolved]
  - Pain [Not Recovered/Not Resolved]
